FAERS Safety Report 8289109-2 (Version None)
Quarter: 2012Q2

REPORT INFORMATION
  Report Type: 
  Country: None (occurrence: None)
  Receive Date: 20120417
  Receipt Date: 20120405
  Transmission Date: 20120825
  Serious: No
  Sender: FDA-Public Use
  Company Number: US-JNJFOC-20120402873

PATIENT
  Sex: Female
  Weight: 93.44 kg

DRUGS (1)
  1. DURAGESIC-100 [Suspect]
     Indication: LUNG NEOPLASM MALIGNANT
     Route: 062
     Dates: start: 20120201

REACTIONS (2)
  - PRODUCT ADHESION ISSUE [None]
  - WRONG TECHNIQUE IN DRUG USAGE PROCESS [None]
